FAERS Safety Report 6227374-3 (Version None)
Quarter: 2009Q2

REPORT INFORMATION
  Report Type: 
  Country: None (occurrence: None)
  Receive Date: 20090610
  Receipt Date: 20090513
  Transmission Date: 20091009
  Serious: Yes (Life-Threatening, Hospitalization)
  Sender: FDA-Public Use
  Company Number: 2009S1008517

PATIENT
  Age: 11 Year
  Sex: Female

DRUGS (2)
  1. LAMOTRIGINE         (LAMOTROGINE) [Suspect]
     Indication: CONVULSION
     Dosage: 0.7 MG; DAILY; ORAL
     Route: 048
  2. VALPROIC ACID [Suspect]
     Indication: CONVULSION
     Dosage: 300 MG; TWICE A DAY; ORAL, 200 MG; TWICE A DAY; ORAL
     Route: 048

REACTIONS (13)
  - ALOPECIA [None]
  - AZOTAEMIA [None]
  - DRUG INTERACTION [None]
  - HAEMORRHAGIC CYST [None]
  - HYPERNATRAEMIA [None]
  - HYPERSENSITIVITY [None]
  - HYPOTENSION [None]
  - LIP BLISTER [None]
  - MULTI-ORGAN FAILURE [None]
  - PERIORBITAL OEDEMA [None]
  - PYREXIA [None]
  - RASH MACULO-PAPULAR [None]
  - RHABDOMYOLYSIS [None]
